FAERS Safety Report 8247829-X (Version None)
Quarter: 2012Q1

REPORT INFORMATION
  Report Type: 
  Country: None (occurrence: None)
  Receive Date: 20120330
  Receipt Date: 20120326
  Transmission Date: 20120608
  Serious: Yes (Other)
  Sender: FDA-Public Use
  Company Number: US-PFIZER INC-2012068956

PATIENT
  Sex: Male

DRUGS (1)
  1. LYRICA [Suspect]
     Indication: INTERVERTEBRAL DISC PROTRUSION
     Dosage: 200 MG, 3X/DAY
     Route: 048

REACTIONS (5)
  - DIABETES MELLITUS [None]
  - BLOOD PRESSURE FLUCTUATION [None]
  - PAIN [None]
  - DRUG ADMINISTRATION ERROR [None]
  - CONFUSIONAL STATE [None]
